FAERS Safety Report 4831978-X (Version None)
Quarter: 2005Q4

REPORT INFORMATION
  Report Type: 
  Country: None (occurrence: None)
  Receive Date: 20051116
  Receipt Date: 20051108
  Transmission Date: 20060501
  Serious: Yes (Death, Other)
  Sender: FDA-Public Use
  Company Number: 066-20785-05110112

PATIENT
  Age: 54 Year
  Sex: Female

DRUGS (6)
  1. THALIDOMIDE (THALIDOMIDE) [Suspect]
     Indication: LIGHT CHAIN DISEASE
     Dosage: 300 MG, QD,
  2. DEXAMETHASONE [Suspect]
     Indication: LIGHT CHAIN DISEASE
     Dosage: 40 MG, QD FOR 4D, Q2WK,
  3. DOXORUBICIN HCL [Concomitant]
  4. VINCRISTINE [Concomitant]
  5. RADIATION THERAPY [Concomitant]
  6. DEXAMETHASONE [Concomitant]

REACTIONS (8)
  - BONE NEOPLASM [None]
  - BRAIN NEOPLASM [None]
  - BULBAR PALSY [None]
  - DISEASE PROGRESSION [None]
  - MALIGNANT NEOPLASM PROGRESSION [None]
  - MENINGEAL DISORDER [None]
  - MULTIPLE MYELOMA [None]
  - NEUROPATHY [None]
